FAERS Safety Report 23384886 (Version 2)
Quarter: 2024Q1

REPORT INFORMATION
  Report Type: Report from Study
  Country: US (occurrence: US)
  Receive Date: 20240109
  Receipt Date: 20240213
  Transmission Date: 20240410
  Serious: Yes (Hospitalization, Other)
  Sender: FDA-Public Use
  Company Number: US-ABBVIE-5575213

PATIENT
  Sex: Male

DRUGS (1)
  1. SKYRIZI [Suspect]
     Active Substance: RISANKIZUMAB-RZAA
     Indication: Psoriasis
     Route: 058
     Dates: start: 20220304

REACTIONS (3)
  - Cardiac operation [Recovered/Resolved]
  - Insomnia [Unknown]
  - Fatigue [Unknown]

NARRATIVE: CASE EVENT DATE: 20240101
